FAERS Safety Report 7588041-7 (Version None)
Quarter: 2011Q3

REPORT INFORMATION
  Report Type: 
  Country: None (occurrence: None)
  Receive Date: 20110705
  Receipt Date: 20110628
  Transmission Date: 20111222
  Serious: Yes (Other)
  Sender: FDA-Public Use
  Company Number: US-PFIZER INC-2011100336

PATIENT
  Sex: Female
  Weight: 72.6 kg

DRUGS (7)
  1. THEOPHYLLINE [Concomitant]
     Dosage: UNK
  2. HYDROCHLOROTHIAZIDE [Concomitant]
     Indication: DIURETIC THERAPY
     Dosage: UNK
  3. AROMASIN [Suspect]
     Indication: BREAST CANCER FEMALE
     Dosage: 25 MG, 1X/DAY
     Route: 048
     Dates: start: 20080101, end: 20110401
  4. AROMASIN [Suspect]
     Dosage: 25 MG, 1X/DAY
     Route: 048
     Dates: start: 20110401
  5. MELOXICAM [Concomitant]
     Dosage: UNK
  6. VITAMIN D [Concomitant]
     Dosage: UNK
  7. VALSARTAN [Concomitant]
     Dosage: UNK

REACTIONS (3)
  - PAIN IN EXTREMITY [None]
  - MYALGIA [None]
  - NEUROPATHY PERIPHERAL [None]
